FAERS Safety Report 10111111 (Version 1)
Quarter: 2014Q2

REPORT INFORMATION
  Report Type: Spontaneous
  Country: JP (occurrence: JP)
  Receive Date: 20140425
  Receipt Date: 20140425
  Transmission Date: 20141212
  Serious: Yes (Other)
  Sender: FDA-Public Use
  Company Number: JP-ASTELLAS-2014JP004073AA

PATIENT
  Sex: Female

DRUGS (2)
  1. VESICARE [Suspect]
     Dosage: UNK, UNKNOWN FREQ.
     Route: 048
  2. BETANIS [Suspect]
     Dosage: UNK, UNKNOWN FREQ.
     Route: 048

REACTIONS (2)
  - Convulsion [Unknown]
  - Diarrhoea [Unknown]
